FAERS Safety Report 14759622 (Version 2)
Quarter: 2019Q4

REPORT INFORMATION
  Report Type: Report from Study
  Country: US (occurrence: US)
  Receive Date: 20180413
  Receipt Date: 20191007
  Transmission Date: 20200122
  Serious: Yes (Hospitalization)
  Sender: FDA-Public Use
  Company Number: US-ARIAD-2017US008834

PATIENT
  Age: 43 Year
  Sex: Male
  Weight: 87 kg

DRUGS (5)
  1. PONATINIB [Suspect]
     Active Substance: PONATINIB
     Indication: CHRONIC MYELOID LEUKAEMIA
     Dosage: 15 MILLIGRAM, QD
     Route: 048
  2. ASPIRIN                            /00002701/ [Concomitant]
     Active Substance: ASPIRIN
     Dosage: UNK
  3. LEXAPRO [Concomitant]
     Active Substance: ESCITALOPRAM OXALATE
     Dosage: UNK
  4. PONATINIB [Suspect]
     Active Substance: PONATINIB
     Indication: CHRONIC MYELOID LEUKAEMIA
     Dosage: 30 MG, QD
     Route: 048
     Dates: start: 20170609
  5. VITAMIN D2 [Concomitant]
     Active Substance: ERGOCALCIFEROL
     Dosage: UNK

REACTIONS (15)
  - Nervousness [Unknown]
  - Erectile dysfunction [Unknown]
  - Anaemia [Unknown]
  - Dry skin [Unknown]
  - Hypomagnesaemia [Unknown]
  - Hyperhidrosis [Unknown]
  - Night sweats [Unknown]
  - Leukocytosis [Unknown]
  - Anxiety [Unknown]
  - Transplant [Unknown]
  - Fatigue [Unknown]
  - Muscle spasms [Unknown]
  - Sleep disorder [Unknown]
  - Blood testosterone decreased [Unknown]
  - Influenza [Unknown]

NARRATIVE: CASE EVENT DATE: 201708
